FAERS Safety Report 5573192-9 (Version None)
Quarter: 2007Q4

REPORT INFORMATION
  Report Type: 
  Country: None (occurrence: None)
  Receive Date: 20071224
  Receipt Date: 20071213
  Transmission Date: 20080405
  Serious: Yes (Death)
  Sender: FDA-Public Use
  Company Number: JP-SANOFI-SYNTHELABO-A01200713985

PATIENT
  Age: 82 Year
  Sex: Female
  Weight: 43 kg

DRUGS (3)
  1. ISOVORIN [Suspect]
     Dosage: 125 MG/BODY=92.6 MG/M2
     Route: 042
     Dates: start: 20071119, end: 20071120
  2. ELPLAT [Suspect]
     Indication: RECTAL CANCER
     Dosage: 100 MG/BODY=74.1 MG/M2
     Route: 042
     Dates: start: 20071119, end: 20071119
  3. FLUOROURACIL [Suspect]
     Dosage: 500 M/GBODY=370.4 MG/M2 BOLUS THEN 750 MG/BODY=555.6 MG/M2 INFUSION D1-2
     Route: 042
     Dates: start: 20071119, end: 20071120

REACTIONS (4)
  - DIARRHOEA [None]
  - LEUKOPENIA [None]
  - STEVENS-JOHNSON SYNDROME [None]
  - VOMITING [None]
